FAERS Safety Report 8261776-9 (Version None)
Quarter: 2012Q2

REPORT INFORMATION
  Report Type: 
  Country: None (occurrence: None)
  Receive Date: 20120405
  Receipt Date: 20120322
  Transmission Date: 20120825
  Serious: Yes (Other)
  Sender: FDA-Public Use
  Company Number: FR-CELGENEUS-056-21880-12022314

PATIENT
  Sex: Female
  Weight: 67 kg

DRUGS (13)
  1. BACTRIM [Concomitant]
     Indication: PROPHYLAXIS
     Route: 065
     Dates: start: 20120206
  2. VINCRISTINE [Concomitant]
     Indication: LYMPHOMA
     Route: 065
     Dates: start: 20120206
  3. PREDNISONE TAB [Concomitant]
     Indication: LYMPHOMA
     Route: 065
     Dates: start: 20120206
  4. ALLOPURINOL [Concomitant]
     Indication: PROPHYLAXIS
     Route: 065
     Dates: start: 20120206
  5. MESNA [Concomitant]
     Route: 065
     Dates: start: 20120206, end: 20120206
  6. RITUXIMAB [Concomitant]
     Indication: LYMPHOMA
     Route: 065
     Dates: start: 20120206
  7. CYCLOPHOSPHAMIDE [Concomitant]
     Indication: LYMPHOMA
     Route: 065
     Dates: start: 20120206
  8. ADRIAMYCIN PFS [Concomitant]
     Indication: LYMPHOMA
     Route: 065
     Dates: start: 20120206
  9. VALACYCLOVIR HYDROCHLORIDE [Concomitant]
     Indication: PROPHYLAXIS
     Route: 065
     Dates: start: 20120206
  10. FOLIC ACID [Concomitant]
     Indication: PROPHYLAXIS
     Route: 065
     Dates: start: 20120206
  11. REVLIMID [Suspect]
     Indication: B-CELL LYMPHOMA
     Dosage: 25 MILLIGRAM
     Route: 048
     Dates: start: 20120206, end: 20120217
  12. ONDANSETRON [Concomitant]
     Route: 065
     Dates: start: 20120206, end: 20120206
  13. POLARAMINE [Concomitant]
     Indication: PROPHYLAXIS
     Route: 065
     Dates: start: 20120206, end: 20120206

REACTIONS (4)
  - EYELID OEDEMA [None]
  - OCULAR HYPERAEMIA [None]
  - CONJUNCTIVITIS [None]
  - RASH ERYTHEMATOUS [None]
